FAERS Safety Report 19662931 (Version 1)
Quarter: 2021Q3

REPORT INFORMATION
  Report Type: Report from Study
  Country: ES (occurrence: ES)
  Receive Date: 20210805
  Receipt Date: 20210805
  Transmission Date: 20211014
  Serious: Yes (Hospitalization)
  Sender: FDA-Public Use
  Company Number: ES-PFIZER INC-202100985684

PATIENT
  Age: 67 Year
  Sex: Female
  Weight: 60 kg

DRUGS (8)
  1. BINIMETINIB [Suspect]
     Active Substance: BINIMETINIB
     Indication: MALIGNANT MELANOMA STAGE IV
     Dosage: 90 MG, 12 H, C1
     Route: 048
     Dates: start: 20201008
  2. AVARIC [Concomitant]
     Indication: PAIN
     Dosage: UNK
     Route: 065
     Dates: start: 20201009
  3. FENTANIL [Concomitant]
     Active Substance: FENTANYL
     Indication: PAIN PROPHYLAXIS
     Dosage: 133 UG, DAILY
     Dates: start: 20201204
  4. ENCORAFENIB [Suspect]
     Active Substance: ENCORAFENIB
     Indication: MALIGNANT MELANOMA STAGE IV
     Dosage: 450 MG/ 24 HOURS, C1
     Route: 048
     Dates: start: 20201008
  5. OMEPRAZOL [Concomitant]
     Active Substance: OMEPRAZOLE
     Indication: HAEMORRHAGE
     Dosage: UNK
     Route: 065
     Dates: start: 20201015
  6. METAMIZOL [Concomitant]
     Active Substance: METAMIZOLE SODIUM
     Indication: PAIN
     Dosage: UNK
     Route: 065
     Dates: start: 20201009
  7. PRIMPERAN [Concomitant]
     Active Substance: METOCLOPRAMIDE HYDROCHLORIDE
     Indication: VOMITING
     Dosage: 1 DF, UNK
     Route: 065
     Dates: start: 20201204
  8. DEXAMETHASONE [DEXAMETHASONE PHOSPHATE] [Concomitant]
     Indication: ANTIINFLAMMATORY THERAPY
     Dosage: 4 MG, DAILY
     Route: 065
     Dates: start: 20210614

REACTIONS (1)
  - Pulmonary embolism [Not Recovered/Not Resolved]

NARRATIVE: CASE EVENT DATE: 20210719
